FAERS Safety Report 10495136 (Version 1)
Quarter: 2014Q4

REPORT INFORMATION
  Report Type: Report from Study
  Country: US (occurrence: US)
  Receive Date: 20141003
  Receipt Date: 20141003
  Transmission Date: 20150528
  Serious: No
  Sender: FDA-Public Use
  Company Number: US-ALEXION-A200800749

PATIENT
  Age: 34 Year
  Sex: Female

DRUGS (1)
  1. SOLIRIS [Suspect]
     Active Substance: ECULIZUMAB
     Indication: PAROXYSMAL NOCTURNAL HAEMOGLOBINURIA
     Dosage: UNK
     Route: 042

REACTIONS (13)
  - Haemoglobinuria [Unknown]
  - Infection [Unknown]
  - Haemoglobin decreased [Unknown]
  - Colitis [Unknown]
  - Quality of life decreased [Unknown]
  - Back pain [Unknown]
  - Stress [Unknown]
  - Dyspnoea [Unknown]
  - Jaundice [Unknown]
  - Malaise [Unknown]
  - Headache [Unknown]
  - Fatigue [Unknown]
  - Cough [Unknown]

NARRATIVE: CASE EVENT DATE: 200912
